FAERS Safety Report 4388553-3 (Version None)
Quarter: 2004Q2

REPORT INFORMATION
  Report Type: 
  Country: None (occurrence: None)
  Receive Date: 20040624
  Receipt Date: 20040611
  Transmission Date: 20050107
  Serious: No
  Sender: FDA-Public Use
  Company Number: CART-10257

PATIENT
  Age: 36 Year
  Sex: Male

DRUGS (1)
  1. CARTICEL [Suspect]
     Indication: ARTHROPATHY
     Dosage: 1 NA ONCE IS
     Dates: start: 20011026, end: 20011026

REACTIONS (3)
  - GRAFT LOSS [None]
  - GRAFT OVERGROWTH [None]
  - SCAR [None]
